FAERS Safety Report 21988745 (Version 1)
Quarter: 2023Q1

REPORT INFORMATION
  Report Type: Spontaneous
  Country: PT (occurrence: PT)
  Receive Date: 20230214
  Receipt Date: 20230214
  Transmission Date: 20230417
  Serious: Yes (Death, Hospitalization, Other)
  Sender: FDA-Public Use
  Company Number: PT-ACTAVIS-2010A-04215

PATIENT
  Age: 62 Year
  Sex: Male

DRUGS (6)
  1. MYCOPHENOLATE MOFETIL [Suspect]
     Active Substance: MYCOPHENOLATE MOFETIL
     Indication: Renal transplant
     Dosage: UNK (STOP DATE BETWEEN SEP 2007 AND NOV 2007. )
     Route: 065
     Dates: start: 200709
  2. PIPERACILLIN AND TAZOBACTAM [Suspect]
     Active Substance: PIPERACILLIN SODIUM\TAZOBACTAM SODIUM
     Indication: Urinary tract infection
     Dosage: UNK
     Route: 065
  3. PREDNISOLONE [Suspect]
     Active Substance: PREDNISOLONE
     Indication: Renal transplant
     Dosage: UNK
     Route: 065
     Dates: start: 200709
  4. BASILIXIMAB [Suspect]
     Active Substance: BASILIXIMAB
     Indication: Renal transplant
     Dosage: UNK
     Route: 065
     Dates: start: 200709
  5. CYCLOSPORINE [Suspect]
     Active Substance: CYCLOSPORINE
     Indication: Product used for unknown indication
     Dosage: UNK
     Route: 065
     Dates: start: 200709
  6. METHYLPREDNISOLONE [Suspect]
     Active Substance: METHYLPREDNISOLONE
     Indication: Immunosuppressant drug therapy
     Dosage: 500 MILLIGRAM, ONCE A DAY (PATIENT RECIEVED METHYLPREDNISOLONE PULSES)
     Route: 065

REACTIONS (19)
  - Coccidioidomycosis [Fatal]
  - Generalised tonic-clonic seizure [Fatal]
  - Fungal abscess central nervous system [Fatal]
  - Loss of consciousness [Fatal]
  - Cerebral fungal infection [Fatal]
  - Brain neoplasm benign [Fatal]
  - Brain oedema [Fatal]
  - Central nervous system lesion [Fatal]
  - Fatigue [Fatal]
  - Somnolence [Fatal]
  - Intracranial mass [Fatal]
  - Pyrexia [Fatal]
  - Leukopenia [Recovering/Resolving]
  - Transplant dysfunction [Unknown]
  - Transplant rejection [Unknown]
  - Pseudomonas infection [Unknown]
  - Pyuria [Unknown]
  - Urinary tract infection [Unknown]
  - Haematuria [Unknown]

NARRATIVE: CASE EVENT DATE: 20070901
